FAERS Safety Report 20925054 (Version 1)
Quarter: 2022Q2

REPORT INFORMATION
  Report Type: Spontaneous
  Country: US (occurrence: US)
  Receive Date: 20220607
  Receipt Date: 20220607
  Transmission Date: 20220720
  Serious: No
  Sender: FDA-Public Use
  Company Number: US-PFIZER INC-202200798004

PATIENT
  Age: 25 Year
  Sex: Male
  Weight: 85.28 kg

DRUGS (4)
  1. PAXLOVID [Suspect]
     Active Substance: NIRMATRELVIR\RITONAVIR
     Indication: COVID-19 treatment
     Dosage: 3 DF, 2X/DAY (IN MORNING AND EVENING)
     Route: 048
     Dates: start: 20220528, end: 20220602
  2. LORATADINE [Concomitant]
     Active Substance: LORATADINE
     Indication: Seasonal allergy
     Dosage: 10 MG, DAILY
  3. PANTOPRAZOLE [Concomitant]
     Active Substance: PANTOPRAZOLE
     Indication: Chronic gastritis
     Dosage: 40 MG, DAILY
  4. STELARA [Concomitant]
     Active Substance: USTEKINUMAB
     Indication: Immunodeficiency
     Dosage: 90 MG (EVERY 8 WEEKS)

REACTIONS (4)
  - Taste disorder [Recovered/Resolved]
  - Product taste abnormal [Recovered/Resolved]
  - Diarrhoea [Recovering/Resolving]
  - Product dose omission issue [Unknown]

NARRATIVE: CASE EVENT DATE: 20220528
